FAERS Safety Report 9637916 (Version 1)
Quarter: 2013Q4

REPORT INFORMATION
  Report Type: Report from Study
  Country: US (occurrence: US)
  Receive Date: 20131022
  Receipt Date: 20131022
  Transmission Date: 20140711
  Serious: Yes (Hospitalization)
  Sender: FDA-Public Use
  Company Number: US-ABBVIE-13P-163-1158427-00

PATIENT
  Sex: Male
  Weight: 126.21 kg

DRUGS (9)
  1. HUMIRA [Suspect]
     Indication: RHEUMATOID ARTHRITIS
     Route: 058
     Dates: start: 2007, end: 2009
  2. HUMIRA [Suspect]
     Route: 058
     Dates: start: 201309
  3. LOPRESSOR [Concomitant]
     Indication: HYPERTENSION
     Route: 048
     Dates: start: 2004
  4. TEGRETOL [Concomitant]
     Indication: NEURALGIA
     Route: 048
     Dates: start: 2004
  5. METHADONE [Concomitant]
     Indication: PAIN
     Route: 048
  6. SINEMET [Concomitant]
     Indication: NEURALGIA
     Route: 048
     Dates: start: 2004
  7. XENEPLEX [Concomitant]
     Indication: RHEUMATOID ARTHRITIS
  8. NEURONTIN [Concomitant]
     Indication: PAIN
     Route: 048
  9. NEXIUM [Concomitant]
     Indication: DYSPEPSIA
     Route: 048

REACTIONS (2)
  - Device dislocation [Recovered/Resolved]
  - Device related infection [Recovered/Resolved]
